FAERS Safety Report 5891103-3 (Version None)
Quarter: 2008Q3

REPORT INFORMATION
  Report Type: 
  Country: None (occurrence: None)
  Receive Date: 20080918
  Receipt Date: 20080918
  Transmission Date: 20090109
  Serious: Yes (Hospitalization)
  Sender: FDA-Public Use
  Company Number: None

PATIENT
  Age: 47 Year
  Sex: Male

DRUGS (6)
  1. LITHIUM CARBONATE [Suspect]
     Indication: BIPOLAR DISORDER
     Dosage: UNKNOWN BID PO
     Route: 048
  2. ESOMEPRAZOLE [Concomitant]
  3. FEOSOL [Concomitant]
  4. HYDROCHLOROTHIAZIDE [Suspect]
  5. VALPROIC ACID [Concomitant]
  6. WARFARIN SODIUM [Concomitant]

REACTIONS (6)
  - BRAIN INJURY [None]
  - HAEMODIALYSIS [None]
  - MENTAL STATUS CHANGES [None]
  - RENAL FAILURE ACUTE [None]
  - RESPIRATORY FAILURE [None]
  - THERAPEUTIC AGENT TOXICITY [None]
